FAERS Safety Report 8517998-2 (Version None)
Quarter: 2012Q3

REPORT INFORMATION
  Report Type: 
  Country: None (occurrence: None)
  Receive Date: 20120718
  Receipt Date: 20120713
  Transmission Date: 20120928
  Serious: Yes (Death, Other)
  Sender: FDA-Public Use
  Company Number: US-ASTELLAS-2012US006177

PATIENT
  Sex: Female

DRUGS (1)
  1. VESICARE [Suspect]
     Indication: PRODUCT USED FOR UNKNOWN INDICATION
     Dosage: 5 MG, UID/QD
     Route: 048
     Dates: start: 20120627, end: 20120707

REACTIONS (6)
  - DEATH [None]
  - URINARY RETENTION [None]
  - HEADACHE [None]
  - CONFUSIONAL STATE [None]
  - ABDOMINAL PAIN [None]
  - DISORIENTATION [None]
